FAERS Safety Report 7596392-5 (Version None)
Quarter: 2011Q3

REPORT INFORMATION
  Report Type: 
  Country: None (occurrence: None)
  Receive Date: 20110707
  Receipt Date: 20110627
  Transmission Date: 20111222
  Serious: Yes (Hospitalization, Disabling)
  Sender: FDA-Public Use
  Company Number: US-MERCK-0802USA02812

PATIENT
  Age: 59 Year
  Sex: Female
  Weight: 83 kg

DRUGS (7)
  1. VITAMIN D (UNSPECIFIED) [Concomitant]
     Route: 065
  2. FOSAMAX [Suspect]
     Route: 048
  3. SYNTHROID [Concomitant]
     Indication: HYPOTHYROIDISM
     Route: 048
  4. CALCIUM (UNSPECIFIED) [Concomitant]
     Route: 065
  5. LIPITOR [Concomitant]
     Route: 065
  6. FOSAMAX PLUS D [Suspect]
     Indication: POSTMENOPAUSE
     Route: 048
     Dates: start: 20060803
  7. FOSAMAX [Suspect]
     Indication: OSTEOPOROSIS PROPHYLAXIS
     Route: 048
     Dates: start: 19980101

REACTIONS (14)
  - FALL [None]
  - OSTEOPENIA [None]
  - FOOT DEFORMITY [None]
  - JOINT EFFUSION [None]
  - BONE LOSS [None]
  - CONTUSION [None]
  - FEMUR FRACTURE [None]
  - FRACTURE [None]
  - ARTHRALGIA [None]
  - NERVOUSNESS [None]
  - BUNION [None]
  - FRACTURE NONUNION [None]
  - PAIN IN EXTREMITY [None]
  - LOW TURNOVER OSTEOPATHY [None]
